FAERS Safety Report 9199213 (Version 5)
Quarter: 2013Q2

REPORT INFORMATION
  Report Type: Spontaneous
  Country: US (occurrence: US)
  Receive Date: 20130329
  Receipt Date: 20130530
  Transmission Date: 20140414
  Serious: No
  Sender: FDA-Public Use
  Company Number: US-VERTEX PHARMACEUTICALS INC.-2013-003462

PATIENT
  Age: 53 Year
  Sex: Male
  Weight: 83 kg

DRUGS (4)
  1. INCIVEK [Suspect]
     Indication: HEPATITIS C
     Dosage: 750 MG, TID
     Route: 048
     Dates: start: 20130312
  2. RIBAVIRIN [Suspect]
     Indication: HEPATITIS C
     Dosage: 600 MG, BID
     Route: 048
     Dates: start: 20130312
  3. PEGASYS [Suspect]
     Indication: HEPATITIS C
     Dosage: 180 ?G, QW
     Route: 058
     Dates: start: 20130312
  4. ALLEGRA [Concomitant]
     Indication: HYPERSENSITIVITY
     Dosage: UNK, QD
     Route: 048

REACTIONS (9)
  - Chills [Recovered/Resolved]
  - Dyspepsia [Recovered/Resolved]
  - Decreased appetite [Recovered/Resolved]
  - Dry mouth [Not Recovered/Not Resolved]
  - Dry skin [Not Recovered/Not Resolved]
  - Injection site rash [Not Recovered/Not Resolved]
  - Fatigue [Not Recovered/Not Resolved]
  - Nausea [Recovered/Resolved]
  - Pruritus [Recovered/Resolved]
